FAERS Safety Report 7051391-7 (Version None)
Quarter: 2010Q4

REPORT INFORMATION
  Report Type: 
  Country: None (occurrence: None)
  Receive Date: 20101019
  Receipt Date: 20100924
  Transmission Date: 20110411
  Serious: Yes (Hospitalization)
  Sender: FDA-Public Use
  Company Number: AU-ASTRAZENECA-2010SE48733

PATIENT
  Age: 31 Year
  Sex: Male

DRUGS (6)
  1. SEROQUEL [Suspect]
     Route: 048
     Dates: start: 20071120, end: 20071129
  2. SEROQUEL [Suspect]
     Dosage: OVERDOSE
     Route: 048
     Dates: start: 20071101
  3. PANAMAX [Suspect]
     Dosage: OVERDOSE
  4. BENZODIAZEPINES [Suspect]
     Dates: start: 20050101
  5. BENZODIAZEPINES [Suspect]
     Dosage: OVERDOSE
     Dates: start: 20071101
  6. ALCOHOL [Suspect]

REACTIONS (3)
  - LIMB INJURY [None]
  - MULTIPLE DRUG OVERDOSE INTENTIONAL [None]
  - NAUSEA [None]
